FAERS Safety Report 24279463 (Version 2)
Quarter: 2024Q4

REPORT INFORMATION
  Report Type: Report from Study
  Country: KR (occurrence: KR)
  Receive Date: 20240903
  Receipt Date: 20241014
  Transmission Date: 20250115
  Serious: Yes (Death)
  Sender: ABBVIE
  Company Number: KR-PFIZER INC-PV202400113495

PATIENT
  Age: 71 Year
  Sex: Male
  Weight: 52 kg

DRUGS (9)
  1. AVIBACTAM SODIUM\CEFTAZIDIME [Suspect]
     Active Substance: AVIBACTAM SODIUM\CEFTAZIDIME
     Indication: Pneumonia
     Dosage: TIME INTERVAL: 0.33333333 DAYS: 7.5 G, 3X/DAY
     Route: 042
     Dates: start: 20240731, end: 20240810
  2. MYCAMINE [Concomitant]
     Active Substance: MICAFUNGIN SODIUM
     Indication: Pneumonia
     Dosage: VIAL
     Route: 042
     Dates: start: 20240729, end: 20240810
  3. TAPOCIN [Concomitant]
     Indication: Pneumonia
     Dosage: VIAL
     Route: 042
     Dates: start: 20240730, end: 20240810
  4. XARELTO [Concomitant]
     Active Substance: RIVAROXABAN
     Indication: Pulmonary embolism
     Dosage: UNK
     Route: 048
     Dates: start: 20231026, end: 20240809
  5. LASIX [Concomitant]
     Active Substance: FUROSEMIDE
     Indication: Pulmonary embolism
     Dosage: LASIX AMP, 20 MG/2 ML
     Route: 042
     Dates: start: 20220404, end: 20240809
  6. PROPACETAMOL HYDROCHLORIDE [Concomitant]
     Active Substance: PROPACETAMOL HYDROCHLORIDE
     Indication: Pneumonia
     Dosage: VIAL
     Route: 042
     Dates: start: 20240720, end: 20240810
  7. Yucozole [Concomitant]
     Indication: Pneumonia
     Dosage: UNK
     Route: 048
     Dates: start: 20240726, end: 20240807
  8. SULFAMETHOXAZOLE\TRIMETHOPRIM [Concomitant]
     Active Substance: SULFAMETHOXAZOLE\TRIMETHOPRIM
     Indication: Pneumonia
     Dosage: UNK
     Route: 048
     Dates: start: 20240719, end: 20240810
  9. PREDNISOLONE [Concomitant]
     Active Substance: PREDNISOLONE
     Indication: Pneumonia
     Dosage: UNK
     Route: 048
     Dates: start: 20240730, end: 20240810

REACTIONS (1)
  - Pneumonia [Fatal]

NARRATIVE: CASE EVENT DATE: 20240811
